FAERS Safety Report 16099925 (Version 4)
Quarter: 2021Q1

REPORT INFORMATION
  Report Type: Spontaneous
  Country: US (occurrence: US)
  Receive Date: 20190321
  Receipt Date: 20210330
  Transmission Date: 20210419
  Serious: Yes (Other)
  Sender: FDA-Public Use
  Company Number: US-ASTRAZENECA-2019SE42919

PATIENT
  Age: 27832 Day
  Sex: Female

DRUGS (3)
  1. SYMBICORT [Suspect]
     Active Substance: BUDESONIDE\FORMOTEROL FUMARATE DIHYDRATE
     Dosage: 160/4.5 MCG UNKNOWN UNKNOWN
     Route: 055
     Dates: start: 2017
  2. SYMBICORT [Suspect]
     Active Substance: BUDESONIDE\FORMOTEROL FUMARATE DIHYDRATE
     Dosage: 160/4.5 MCG, 2 PUFFS IN THE MORNING AND 2 PUFFS AT NIGHT UNKNOWN
     Route: 055
     Dates: start: 20210228
  3. SYMBICORT [Suspect]
     Active Substance: BUDESONIDE\FORMOTEROL FUMARATE DIHYDRATE
     Dosage: 160/4.5 MCG UNKNOWN UNKNOWN
     Route: 055
     Dates: start: 20190314

REACTIONS (10)
  - Anxiety [Unknown]
  - Wrong technique in device usage process [Unknown]
  - Device malfunction [Unknown]
  - Deafness [Unknown]
  - Chronic obstructive pulmonary disease [Unknown]
  - Overweight [Unknown]
  - Dementia with Lewy bodies [Unknown]
  - Hypertension [Unknown]
  - Ear infection [Unknown]
  - Asthma [Unknown]

NARRATIVE: CASE EVENT DATE: 20190314
